FAERS Safety Report 10447638 (Version 1)
Quarter: 2014Q3

REPORT INFORMATION
  Report Type: Spontaneous
  Country: DK (occurrence: FR)
  Receive Date: 20140911
  Receipt Date: 20140911
  Transmission Date: 20150326
  Serious: Yes (Other)
  Sender: FDA-Public Use
  Company Number: FR-FRI-1000070484

PATIENT
  Sex: Female

DRUGS (1)
  1. CITALOPRAM [Suspect]
     Active Substance: CITALOPRAM HYDROBROMIDE
     Indication: MORBID THOUGHTS
     Dosage: 20 MG
     Dates: start: 20140711

REACTIONS (4)
  - Haematochezia [Unknown]
  - Off label use [Unknown]
  - Spontaneous haematoma [Unknown]
  - Blood urine present [Recovering/Resolving]

NARRATIVE: CASE EVENT DATE: 201407
